FAERS Safety Report 5261213-2 (Version None)
Quarter: 2007Q1

REPORT INFORMATION
  Report Type: 
  Country: None (occurrence: None)
  Receive Date: 20070309
  Receipt Date: 20070227
  Transmission Date: 20070707
  Serious: Yes (Other)
  Sender: FDA-Public Use
  Company Number: US-PFIZER INC-2007015686

PATIENT

DRUGS (3)
  1. LIPITOR [Suspect]
  2. VALSARTAN [Concomitant]
  3. MONTELUKAST SODIUM [Concomitant]

REACTIONS (2)
  - PAIN IN EXTREMITY [None]
  - SURGERY [None]
